FAERS Safety Report 6167103-5 (Version None)
Quarter: 2009Q2

REPORT INFORMATION
  Report Type: 
  Country: None (occurrence: None)
  Receive Date: 20090424
  Receipt Date: 20090414
  Transmission Date: 20091009
  Serious: Yes (Other)
  Sender: FDA-Public Use
  Company Number: DK-JNJFOC-20090403444

PATIENT
  Age: 49 Year
  Sex: Male

DRUGS (4)
  1. INFLIXIMAB [Suspect]
     Indication: ACUTE FEBRILE NEUTROPHILIC DERMATOSIS
     Route: 042
  2. INFLIXIMAB [Suspect]
     Indication: RHEUMATOID ARTHRITIS
     Route: 042
  3. PREDNISOLONE [Concomitant]
  4. METHOTREXATE [Concomitant]

REACTIONS (4)
  - HYPERCALCAEMIA [None]
  - MYCOBACTERIUM MARINUM INFECTION [None]
  - RENAL FAILURE [None]
  - VITAMIN D DECREASED [None]
